FAERS Safety Report 11192089 (Version 2)
Quarter: 2015Q3

REPORT INFORMATION
  Report Type: Report from Study
  Country: FR (occurrence: FR)
  Receive Date: 20150616
  Receipt Date: 20150727
  Transmission Date: 20151125
  Serious: Yes (Hospitalization)
  Sender: FDA-Public Use
  Company Number: FR-SA-2015SA007346

PATIENT
  Age: 36 Year
  Sex: Male
  Weight: 68 kg

DRUGS (25)
  1. RANITIDINE [Concomitant]
     Active Substance: RANITIDINE\RANITIDINE HYDROCHLORIDE
     Route: 048
  2. ACICLOVIR [Concomitant]
     Active Substance: ACYCLOVIR
     Route: 048
     Dates: start: 20150112
  3. DERINOX [Concomitant]
     Active Substance: NAPHAZOLINE NITRATE\PREDNISOLONE
     Dosage: DOSAGE: 2?DOSE UNIT: PULVERISATION
     Route: 045
     Dates: start: 20150206, end: 20150210
  4. PARACETAMOL [Concomitant]
     Active Substance: ACETAMINOPHEN
     Route: 048
     Dates: start: 20150118, end: 201504
  5. STILNOX [Concomitant]
     Active Substance: ZOLPIDEM TARTRATE
     Indication: DRUG THERAPY
     Route: 048
     Dates: start: 20150111, end: 20150116
  6. RANITIDINE [Concomitant]
     Active Substance: RANITIDINE\RANITIDINE HYDROCHLORIDE
     Route: 048
     Dates: start: 20150112
  7. CETIRIZINE [Concomitant]
     Active Substance: CETIRIZINE HYDROCHLORIDE
     Route: 048
  8. POLARAMINE [Concomitant]
     Active Substance: DEXCHLORPHENIRAMINE MALEATE
     Dosage: DOSE:5 MILLIGRAM(S)/MILLILITRE
     Route: 042
     Dates: start: 20150112
  9. METHYLPREDNISOLONE. [Concomitant]
     Active Substance: METHYLPREDNISOLONE
     Route: 042
     Dates: start: 20150114
  10. LEMTRADA [Suspect]
     Active Substance: ALEMTUZUMAB
     Indication: RELAPSING-REMITTING MULTIPLE SCLEROSIS
     Route: 042
     Dates: start: 20150112, end: 20150116
  11. CIALIS [Concomitant]
     Active Substance: TADALAFIL
     Indication: PROPHYLAXIS
     Route: 048
     Dates: start: 20120615
  12. METHYLPREDNISOLONE. [Concomitant]
     Active Substance: METHYLPREDNISOLONE
     Route: 042
     Dates: start: 20150115
  13. MEDROL [Concomitant]
     Active Substance: METHYLPREDNISOLONE
     Route: 048
  14. SPAGULAX [Concomitant]
     Active Substance: PLANTAGO OVATA SEED
     Indication: DRUG THERAPY
     Route: 048
     Dates: start: 20120615
  15. PARACETAMOL [Concomitant]
     Active Substance: ACETAMINOPHEN
     Route: 048
     Dates: start: 20150112
  16. ACICLOVIR [Concomitant]
     Active Substance: ACYCLOVIR
     Route: 048
     Dates: start: 20150117, end: 20150210
  17. DIFFU K [Concomitant]
     Active Substance: POTASSIUM CHLORIDE
     Indication: DRUG THERAPY
     Route: 048
     Dates: start: 20150115, end: 20150116
  18. PARACETAMOL [Concomitant]
     Active Substance: ACETAMINOPHEN
     Route: 048
     Dates: start: 20150113
  19. METHYLPREDNISOLONE. [Concomitant]
     Active Substance: METHYLPREDNISOLONE
     Route: 042
     Dates: start: 20150116
  20. VESICARE [Concomitant]
     Active Substance: SOLIFENACIN SUCCINATE
     Indication: DRUG THERAPY
     Route: 048
     Dates: start: 20120615
  21. FAMPYRA [Concomitant]
     Active Substance: DALFAMPRIDINE
     Indication: DRUG THERAPY
     Route: 048
     Dates: start: 20120615
  22. LIORESAL [Concomitant]
     Active Substance: BACLOFEN
     Indication: DRUG THERAPY
     Route: 048
     Dates: start: 20140915
  23. ACICLOVIR [Concomitant]
     Active Substance: ACYCLOVIR
     Route: 048
     Dates: start: 20150211, end: 20150325
  24. METHYLPREDNISOLONE. [Concomitant]
     Active Substance: METHYLPREDNISOLONE
     Route: 042
     Dates: start: 20150112
  25. DOLIPRANE [Concomitant]
     Active Substance: ACETAMINOPHEN
     Indication: DRUG THERAPY
     Route: 048
     Dates: start: 20150112

REACTIONS (4)
  - Pyrexia [Recovered/Resolved]
  - Systemic inflammatory response syndrome [Recovered/Resolved]
  - Urticaria [Recovered/Resolved]
  - Tachycardia [Recovered/Resolved]

NARRATIVE: CASE EVENT DATE: 20150117
